FAERS Safety Report 6991982-2 (Version None)
Quarter: 2010Q3

REPORT INFORMATION
  Report Type: 
  Country: None (occurrence: None)
  Receive Date: 20100917
  Receipt Date: 20100907
  Transmission Date: 20110219
  Serious: Yes (Hospitalization)
  Sender: FDA-Public Use
  Company Number: PHFR2010GB03072

PATIENT
  Sex: Female

DRUGS (1)
  1. CLOZARIL [Suspect]
     Indication: SCHIZOPHRENIA
     Dosage: 450 MG DAILY NOCTE
     Route: 048
     Dates: start: 20091211

REACTIONS (3)
  - INTENTIONAL SELF-INJURY [None]
  - INTERNATIONAL NORMALISED RATIO ABNORMAL [None]
  - POISONING DELIBERATE [None]
